FAERS Safety Report 10024184 (Version 1)
Quarter: 2014Q1

REPORT INFORMATION
  Report Type: Spontaneous
  Country: JP (occurrence: None)
  Receive Date: 20140127
  Receipt Date: 20140127
  Transmission Date: 20141002
  Serious: Yes (Other)
  Sender: FDA-Public Use
  Company Number: ADR-2010-9363

PATIENT
  Age: 14 Year
  Sex: Male

DRUGS (4)
  1. GABALON [Suspect]
     Indication: MUSCLE SPASTICITY
     Dosage: 135 MCG/DAY. SEE B5
  2. PHENOBAL [Concomitant]
  3. ALFAROL [Concomitant]
  4. MAGNESIUM OXIDE [Concomitant]

REACTIONS (4)
  - Local swelling [None]
  - Device leakage [None]
  - Implant site reaction [None]
  - Implant site extravasation [None]
